FAERS Safety Report 5527181-0 (Version None)
Quarter: 2007Q4

REPORT INFORMATION
  Report Type: 
  Country: None (occurrence: None)
  Receive Date: 20071121
  Receipt Date: 20071113
  Transmission Date: 20080405
  Serious: Yes (Hospitalization)
  Sender: FDA-Public Use
  Company Number: US021737

PATIENT
  Age: 40 Year
  Sex: Female

DRUGS (1)
  1. PROVIGIL [Suspect]
     Dosage: TOTAL DOSE INGESTED UNKNOWN ONCE ORAL
     Route: 048
     Dates: start: 20030521, end: 20030521

REACTIONS (2)
  - INCORRECT DOSE ADMINISTERED [None]
  - SUICIDE ATTEMPT [None]
